FAERS Safety Report 11341569 (Version 1)
Quarter: 2015Q3

REPORT INFORMATION
  Report Type: Report from Study
  Country: JP (occurrence: JP)
  Receive Date: 20150805
  Receipt Date: 20150805
  Transmission Date: 20151125
  Serious: Yes (Other)
  Sender: FDA-Public Use
  Company Number: PHHY2014JP046207

PATIENT
  Age: 35 Year
  Sex: Female

DRUGS (18)
  1. CLOZARIL [Suspect]
     Active Substance: CLOZAPINE
     Dosage: 75 MG, UNK
     Route: 048
     Dates: start: 20130531, end: 20130601
  2. CLOZARIL [Suspect]
     Active Substance: CLOZAPINE
     Dosage: 200 MG, UNK
     Route: 048
     Dates: start: 20130613, end: 20130725
  3. LIMAS [Concomitant]
     Active Substance: LITHIUM CARBONATE
     Indication: SCHIZOPHRENIA, PARANOID TYPE
     Dosage: 600 MG, UNK
     Route: 048
     Dates: start: 20130307
  4. CLOZARIL [Suspect]
     Active Substance: CLOZAPINE
     Indication: SCHIZOPHRENIA, PARANOID TYPE
     Dosage: 12.5 MG, UNK
     Route: 048
     Dates: start: 20130524, end: 20130524
  5. CLOZARIL [Suspect]
     Active Substance: CLOZAPINE
     Dosage: 25 MG, UNK
     Route: 048
     Dates: start: 20130525, end: 20130527
  6. CLOZARIL [Suspect]
     Active Substance: CLOZAPINE
     Dosage: 50 MG, UNK
     Route: 048
     Dates: start: 20130528, end: 20130530
  7. CLOZARIL [Suspect]
     Active Substance: CLOZAPINE
     Dosage: 150 MG, UNK
     Route: 048
     Dates: start: 20130607, end: 20130609
  8. CLOZARIL [Suspect]
     Active Substance: CLOZAPINE
     Dosage: 200 MG, QD
     Route: 048
     Dates: start: 20130823
  9. LAXOBERON [Concomitant]
     Active Substance: SODIUM PICOSULFATE
     Dosage: 10 DRP, PRN
     Route: 048
     Dates: start: 20130825
  10. AKINETON [Concomitant]
     Active Substance: BIPERIDEN HYDROCHLORIDE
     Indication: PARKINSONISM
     Dosage: 2 MG, UNK
     Route: 048
     Dates: start: 20130404
  11. CLOZARIL [Suspect]
     Active Substance: CLOZAPINE
     Dosage: 125 MG, UNK
     Route: 048
     Dates: start: 20130604, end: 20130606
  12. LAXOBERON [Concomitant]
     Active Substance: SODIUM PICOSULFATE
     Indication: CONSTIPATION
     Dosage: 10 DRP, UNK
     Route: 048
     Dates: start: 20121204
  13. PENTASA [Concomitant]
     Active Substance: MESALAMINE
     Indication: PRODUCT USED FOR UNKNOWN INDICATION
     Dosage: 750 MG, UNK
     Route: 048
     Dates: start: 20130825
  14. BENZALIN [Concomitant]
     Active Substance: NITRAZEPAM
     Dosage: 5 MG, UNK
     Route: 048
     Dates: start: 20130815, end: 20130816
  15. CLOZARIL [Suspect]
     Active Substance: CLOZAPINE
     Dosage: 150 MG, UNK
     Route: 048
     Dates: start: 20130726, end: 20130822
  16. BENZALIN [Concomitant]
     Active Substance: NITRAZEPAM
     Indication: SCHIZOPHRENIA, PARANOID TYPE
     Dosage: 10 MG, UNK
     Route: 048
     Dates: start: 20130228, end: 20130814
  17. CLOZARIL [Suspect]
     Active Substance: CLOZAPINE
     Dosage: 100 MG, UNK
     Route: 048
     Dates: start: 20130602, end: 20130603
  18. CLOZARIL [Suspect]
     Active Substance: CLOZAPINE
     Dosage: 175 MG, UNK
     Route: 048
     Dates: start: 20130610, end: 20130612

REACTIONS (5)
  - Salivary hypersecretion [Not Recovered/Not Resolved]
  - Monocyte count increased [Unknown]
  - Hyperglycaemia [Recovered/Resolved]
  - Liver disorder [Recovered/Resolved]
  - Blood pressure systolic decreased [Unknown]

NARRATIVE: CASE EVENT DATE: 20130619
